FAERS Safety Report 8984428 (Version 4)
Quarter: 2013Q1

REPORT INFORMATION
  Report Type: Spontaneous
  Country: AU (occurrence: None)
  Receive Date: 20121214
  Receipt Date: 20130313
  Transmission Date: 20140127
  Serious: Yes (Life-Threatening, Hospitalization, Other)
  Sender: FDA-Public Use
  Company Number: DSU-2012-09732

PATIENT
  Age: 78 Year
  Sex: Female
  Weight: 60 kg

DRUGS (5)
  1. OLMETEC (OLMESARTAN MEDOXOMIL) [Suspect]
     Indication: HYPERTENSION
     Route: 048
     Dates: start: 201106, end: 201206
  2. METRONIDAZOLE [Suspect]
     Indication: CLOSTRIDIUM DIFFICILE INFECTION
     Dates: start: 201206, end: 201206
  3. ATENOLOL (ATENOLOL) (ATENOLOL) [Concomitant]
  4. PRAVASTATIN (PRAVASTATIN) (PRAVASTATIN) (PRAVASTATIN) [Concomitant]
  5. ASPIRIN (ACETYLSALICYLIC ACID) (ACETYLSALICYLIC ACID) [Concomitant]

REACTIONS (6)
  - Weight decreased [None]
  - Diarrhoea [None]
  - Dehydration [None]
  - Nausea [None]
  - Vomiting [None]
  - Coeliac disease [None]
